FAERS Safety Report 6085813-5 (Version None)
Quarter: 2009Q1

REPORT INFORMATION
  Report Type: 
  Country: None (occurrence: None)
  Receive Date: 20090220
  Receipt Date: 20090217
  Transmission Date: 20090719
  Serious: Yes (Other)
  Sender: FDA-Public Use
  Company Number: A0704935A

PATIENT
  Sex: Male

DRUGS (3)
  1. WELLBUTRIN [Suspect]
     Indication: DRUG USE FOR UNKNOWN INDICATION
     Route: 065
     Dates: start: 20050204, end: 20050919
  2. PAXIL [Suspect]
     Indication: SELF-MEDICATION
     Route: 065
  3. SEROQUEL [Concomitant]
     Dates: start: 20050516

REACTIONS (17)
  - ADVERSE EVENT [None]
  - ANXIETY [None]
  - DECREASED APPETITE [None]
  - DECREASED INTEREST [None]
  - DELUSION [None]
  - DEPRESSED MOOD [None]
  - FATIGUE [None]
  - FEEDING DISORDER [None]
  - HALLUCINATION, AUDITORY [None]
  - HYPOPHAGIA [None]
  - IMPAIRED SELF-CARE [None]
  - INSOMNIA [None]
  - MAJOR DEPRESSION [None]
  - PSYCHOTIC DISORDER [None]
  - SCHIZOAFFECTIVE DISORDER [None]
  - SELF-MEDICATION [None]
  - SLEEP DISORDER [None]
